FAERS Safety Report 12232281 (Version 1)
Quarter: 2016Q2

REPORT INFORMATION
  Report Type: Spontaneous
  Country: DE (occurrence: DE)
  Receive Date: 20160401
  Receipt Date: 20160401
  Transmission Date: 20160815
  Serious: Yes (Hospitalization)
  Sender: FDA-Public Use
  Company Number: DE-009507513-1511DEU015670

PATIENT
  Age: 64 Year
  Sex: Male
  Weight: 94 kg

DRUGS (11)
  1. METFORMIN ATID [Suspect]
     Active Substance: METFORMIN HYDROCHLORIDE
     Dosage: 1000 MG EVERY DAY
     Dates: start: 2008, end: 201504
  2. ALLOPURINOL. [Concomitant]
     Active Substance: ALLOPURINOL
     Dosage: 1 DF DOSAGE FORM EVERY DAY (300 MG, QD)
     Route: 048
  3. TAMSULOSIN HYDROCHLORIDE. [Concomitant]
     Active Substance: TAMSULOSIN HYDROCHLORIDE
     Dosage: 1 DF, QD
     Dates: start: 20150929
  4. TAMSULOSIN HYDROCHLORIDE. [Concomitant]
     Active Substance: TAMSULOSIN HYDROCHLORIDE
     Dosage: UNK
     Route: 048
     Dates: end: 20150929
  5. TORSEMIDE. [Concomitant]
     Active Substance: TORSEMIDE
     Indication: DIURETIC THERAPY
     Dosage: 1 DF DOSAGE FORM EVERY DAY (10 MG, QD)
     Route: 048
  6. PANTOPRAZOLE SODIUM. [Concomitant]
     Active Substance: PANTOPRAZOLE SODIUM
     Indication: GASTRIC PH DECREASED
     Dosage: 20 MG, EVERY DAY
     Route: 048
  7. XIPAMIDE [Concomitant]
     Active Substance: XIPAMIDE
     Indication: DIURETIC THERAPY
     Dosage: 1 DF DOSAGE FORM EVERY DAY
  8. JANUMET [Suspect]
     Active Substance: METFORMIN HYDROCHLORIDE\SITAGLIPTIN PHOSPHATE
     Indication: TYPE 2 DIABETES MELLITUS
     Dosage: 2 DF DOSAGE FORM EVERYDAY (100MG/2000MG EVERY DAY)
     Route: 048
     Dates: start: 201508, end: 201602
  9. GLIMEPIRIDE. [Suspect]
     Active Substance: GLIMEPIRIDE
     Indication: TYPE 2 DIABETES MELLITUS
     Dosage: 3 MG, EVERY DAY
     Route: 048
     Dates: end: 201602
  10. METFORMIN ATID [Suspect]
     Active Substance: METFORMIN HYDROCHLORIDE
     Indication: TYPE 2 DIABETES MELLITUS
     Dosage: 2000 MG EVERY DAY
     Dates: start: 201504, end: 201508
  11. METOPROLOL SUCCINATE. [Concomitant]
     Active Substance: METOPROLOL SUCCINATE
     Indication: HYPERTENSION
     Dosage: 1 DF DOSAGE FORM EVERY DAY (95 MG, QD)
     Route: 048

REACTIONS (4)
  - Weight fluctuation [Recovering/Resolving]
  - Diabetic foot infection [Unknown]
  - Thermal burn [Unknown]
  - Hyperglycaemia [Recovering/Resolving]

NARRATIVE: CASE EVENT DATE: 201508
